FAERS Safety Report 5005497-4 (Version None)
Quarter: 2006Q2

REPORT INFORMATION
  Report Type: 
  Country: None (occurrence: None)
  Receive Date: 20060518
  Receipt Date: 20051221
  Transmission Date: 20061013
  Serious: Yes (Hospitalization, Other)
  Sender: FDA-Public Use
  Company Number: US-MERCK-0512USA03417

PATIENT
  Age: 85 Year
  Sex: Female
  Weight: 50 kg

DRUGS (8)
  1. VIOXX [Suspect]
     Indication: BACK PAIN
     Route: 048
     Dates: start: 20030101, end: 20031202
  2. LANOXIN [Concomitant]
     Route: 065
     Dates: start: 20020301
  3. NORVASC [Concomitant]
     Route: 065
  4. METOPROLOL [Concomitant]
     Route: 065
  5. SYNTHROID [Concomitant]
     Indication: HYPOTHYROIDISM
     Route: 065
  6. VALIUM [Concomitant]
     Route: 065
  7. TYLENOL (CAPLET) [Concomitant]
     Route: 065
  8. ADVIL [Concomitant]
     Route: 065

REACTIONS (31)
  - ANAEMIA [None]
  - ANAEMIA OF CHRONIC DISEASE [None]
  - ANGINA UNSTABLE [None]
  - ANOREXIA [None]
  - AORTIC ANEURYSM [None]
  - ATRIAL FIBRILLATION [None]
  - BLADDER DISORDER [None]
  - CARDIAC FAILURE CONGESTIVE [None]
  - CHRONIC OBSTRUCTIVE PULMONARY DISEASE [None]
  - DEHYDRATION [None]
  - DIASTOLIC DYSFUNCTION [None]
  - DIZZINESS [None]
  - DYSPHAGIA [None]
  - ECCHYMOSIS [None]
  - EMBOLIC CEREBRAL INFARCTION [None]
  - HERPES ZOSTER [None]
  - HYPERTENSION [None]
  - HYPOKALAEMIA [None]
  - HYPOTHYROIDISM [None]
  - HYPOVOLAEMIA [None]
  - INTERNATIONAL NORMALISED RATIO INCREASED [None]
  - MYOCARDIAL ISCHAEMIA [None]
  - OEDEMA PERIPHERAL [None]
  - PNEUMONITIS [None]
  - POST HERPETIC NEURALGIA [None]
  - RENAL FAILURE [None]
  - RESPIRATORY DISTRESS [None]
  - THERAPEUTIC AGENT TOXICITY [None]
  - URINARY TRACT INFECTION [None]
  - VENTRICULAR HYPERTROPHY [None]
  - VERTIGO POSITIONAL [None]
